FAERS Safety Report 9318436 (Version 1)
Quarter: 2013Q2

REPORT INFORMATION
  Report Type: Spontaneous
  Country: US (occurrence: US)
  Receive Date: 20130530
  Receipt Date: 20130530
  Transmission Date: 20140414
  Serious: No
  Sender: FDA-Public Use
  Company Number: US-NOVEN-12US005677

PATIENT
  Age: 6 Year
  Sex: Female
  Weight: 18.14 kg

DRUGS (2)
  1. DAYTRANA [Suspect]
     Indication: ATTENTION DEFICIT/HYPERACTIVITY DISORDER
     Dosage: 10 MG, QD
     Route: 062
     Dates: start: 20121113
  2. CLONIDINE [Concomitant]
     Indication: INSOMNIA

REACTIONS (3)
  - Abnormal behaviour [Not Recovered/Not Resolved]
  - Drug administered at inappropriate site [Not Recovered/Not Resolved]
  - Dyskinesia [Not Recovered/Not Resolved]
